FAERS Safety Report 6632749-4 (Version None)
Quarter: 2010Q1

REPORT INFORMATION
  Report Type: 
  Country: None (occurrence: None)
  Receive Date: 20100312
  Receipt Date: 20100310
  Transmission Date: 20100710
  Serious: Yes (Life-Threatening, Other)
  Sender: FDA-Public Use
  Company Number: AU-ROXANE LABORATORIES, INC.-2010-RO-00248RO

PATIENT
  Age: 36 Year
  Sex: Male
  Weight: 80 kg

DRUGS (15)
  1. LIDOCAINE [Suspect]
     Indication: MUSCLE SPASMS
  2. LIDOCAINE [Suspect]
     Indication: PAIN IN EXTREMITY
     Dosage: 10 ML
  3. ADRENALINE [Suspect]
     Indication: MUSCLE SPASMS
  4. ADRENALINE [Suspect]
     Indication: PAIN IN EXTREMITY
  5. BUPIVACAINE HCL [Suspect]
     Indication: MUSCLE SPASMS
     Dosage: 20 ML
  6. BUPIVACAINE HCL [Suspect]
     Indication: PAIN IN EXTREMITY
  7. BOTOX [Suspect]
     Indication: MUSCLE SPASMS
     Route: 030
  8. BOTOX [Suspect]
     Indication: PAIN IN EXTREMITY
  9. CLEXANE [Suspect]
     Indication: THROMBOSIS PROPHYLAXIS
  10. PREGABALIN [Suspect]
     Indication: PAIN IN EXTREMITY
  11. DANTROLENE [Suspect]
     Indication: PAIN IN EXTREMITY
  12. HARMANN'S SOLUTION [Concomitant]
     Indication: DRUG TOXICITY
     Route: 042
  13. OXYGEN [Concomitant]
     Indication: DRUG TOXICITY
  14. INTRALIPID 20% [Concomitant]
     Indication: DRUG TOXICITY
  15. INTRALIPID 20% [Concomitant]

REACTIONS (2)
  - DRUG TOXICITY [None]
  - MUSCLE SPASMS [None]
